FAERS Safety Report 4381128-1 (Version None)
Quarter: 2004Q2

REPORT INFORMATION
  Report Type: 
  Country: None (occurrence: None)
  Receive Date: 20040616
  Receipt Date: 20040527
  Transmission Date: 20050107
  Serious: Yes (Death, Hospitalization)
  Sender: FDA-Public Use
  Company Number: US_0401100302

PATIENT
  Age: 66 Year
  Sex: Male
  Weight: 84 kg

DRUGS (13)
  1. PEMETREXED [Suspect]
     Indication: PLEURAL MESOTHELIOMA
     Dosage: 500 MG/M2/OTHER
     Route: 050
     Dates: start: 20031216
  2. CISPLATIN [Suspect]
     Indication: PLEURAL MESOTHELIOMA
     Dosage: 75 MG/M2/OTHER
     Route: 050
     Dates: start: 20031216
  3. KYTRIL [Concomitant]
  4. DECADRON [Concomitant]
  5. COMPAZINE [Concomitant]
  6. FOLIC ACID [Concomitant]
  7. NADOLOL [Concomitant]
  8. MEGESTROL [Concomitant]
  9. VITAMIN B-12 [Concomitant]
  10. LIPITOR [Concomitant]
  11. METOPROLOL TARTRATE [Concomitant]
  12. PHENERGAN (PROMETHAZINE HYDROCLORIDE) [Concomitant]
  13. LOMOTIL [Concomitant]

REACTIONS (48)
  - ABDOMINAL PAIN LOWER [None]
  - AGITATION [None]
  - ANOREXIA [None]
  - ANXIETY [None]
  - APNOEA [None]
  - ASTHENIA [None]
  - BLOOD BICARBONATE DECREASED [None]
  - BLOOD CREATININE INCREASED [None]
  - BLOOD PH DECREASED [None]
  - BLOOD SODIUM DECREASED [None]
  - BLOOD UREA INCREASED [None]
  - BODY TEMPERATURE DECREASED [None]
  - CANDIDIASIS [None]
  - CHEST X-RAY ABNORMAL [None]
  - COUGH [None]
  - CREATININE RENAL CLEARANCE DECREASED [None]
  - DEEP VEIN THROMBOSIS [None]
  - DEHYDRATION [None]
  - DIARRHOEA [None]
  - DYSPNOEA [None]
  - FATIGUE [None]
  - FEBRILE NEUTROPENIA [None]
  - FLUID RETENTION [None]
  - GENERAL PHYSICAL HEALTH DETERIORATION [None]
  - HAEMATOCHEZIA [None]
  - HAEMOGLOBIN DECREASED [None]
  - HYPOTENSION [None]
  - HYPOVENTILATION [None]
  - INTERNATIONAL NORMALISED RATIO DECREASED [None]
  - INTERVERTEBRAL DISC DISORDER [None]
  - JOINT SWELLING [None]
  - PANCYTOPENIA [None]
  - PCO2 INCREASED [None]
  - PITTING OEDEMA [None]
  - PLEURAL EFFUSION [None]
  - PLEURAL FIBROSIS [None]
  - PO2 INCREASED [None]
  - POLLAKIURIA [None]
  - PROTHROMBIN TIME PROLONGED [None]
  - PULMONARY EMBOLISM [None]
  - RESPIRATORY FAILURE [None]
  - RESPIRATORY RATE INCREASED [None]
  - SOMNOLENCE [None]
  - SWELLING [None]
  - TACHYCARDIA [None]
  - THERAPEUTIC AGENT TOXICITY [None]
  - URINARY HESITATION [None]
  - URINE OUTPUT DECREASED [None]
